FAERS Safety Report 8756385 (Version 3)
Quarter: 2013Q4

REPORT INFORMATION
  Report Type: Spontaneous
  Country: US (occurrence: US)
  Receive Date: 20120828
  Receipt Date: 20131101
  Transmission Date: 20140711
  Serious: No
  Sender: FDA-Public Use
  Company Number: US-009507513-1208USA001707

PATIENT
  Age: 30 Year
  Sex: Female

DRUGS (1)
  1. NEXPLANON [Suspect]
     Dosage: UNK
     Dates: start: 20120724

REACTIONS (5)
  - Device deployment issue [Unknown]
  - Device breakage [Unknown]
  - Device difficult to use [Unknown]
  - Device expulsion [Unknown]
  - No adverse event [Unknown]
